FAERS Safety Report 7196244-9 (Version None)
Quarter: 2010Q4

REPORT INFORMATION
  Report Type: 
  Country: None (occurrence: None)
  Receive Date: 20101223
  Receipt Date: 20101019
  Transmission Date: 20110411
  Serious: No
  Sender: FDA-Public Use
  Company Number: US-AMGEN-USASP2010000935

PATIENT

DRUGS (2)
  1. ENBREL [Suspect]
     Indication: RHEUMATOID ARTHRITIS
     Dosage: 25 MG, 2 TIMES/WK
  2. ENBREL [Suspect]
     Indication: ANKYLOSING SPONDYLITIS

REACTIONS (5)
  - ANKYLOSING SPONDYLITIS [None]
  - CATARACT [None]
  - RHEUMATOID ARTHRITIS [None]
  - SLEEP DISORDER [None]
  - WEIGHT INCREASED [None]
